FAERS Safety Report 15123936 (Version 1)
Quarter: 2018Q3

REPORT INFORMATION
  Report Type: Spontaneous
  Country: FR (occurrence: FR)
  Receive Date: 20180710
  Receipt Date: 20180710
  Transmission Date: 20181010
  Serious: Yes (Life-Threatening, Hospitalization)
  Sender: FDA-Public Use
  Company Number: FR-TEVA-2018-FR-923533

PATIENT
  Age: 80 Year
  Sex: Female
  Weight: 68 kg

DRUGS (11)
  1. ATORVASTATINE [Concomitant]
     Active Substance: ATORVASTATIN
     Route: 065
  2. LANSOPRAZOLE. [Suspect]
     Active Substance: LANSOPRAZOLE
     Indication: PRODUCT USED FOR UNKNOWN INDICATION
     Dosage: 15 MILLIGRAM DAILY;
     Route: 048
  3. COAPROVEL 150 MG/12,5 MG, COMPRIM? [Suspect]
     Active Substance: HYDROCHLOROTHIAZIDE\IRBESARTAN
     Indication: PRODUCT USED FOR UNKNOWN INDICATION
     Dosage: 1 DOSAGE FORMS DAILY; 150 MG/12,5 MG. COMPRESSED.
     Route: 048
  4. DELURSAN 500 MG, COMPRIM? PELLICUL? S?CABLE [Concomitant]
     Dosage: TABLET COATED SCORED
     Route: 065
  5. FURADANTINE [Concomitant]
     Active Substance: NITROFURANTOIN
     Route: 065
  6. RISPERDAL [Suspect]
     Active Substance: RISPERIDONE
     Indication: PRODUCT USED FOR UNKNOWN INDICATION
     Dosage: 1 DOSAGE FORMS DAILY; TABLET COATED SCORED
     Route: 048
  7. CACIT VITAMINE D3 [Concomitant]
     Active Substance: CALCIUM CARBONATE\CHOLECALCIFEROL
     Route: 065
  8. BISOPROLOL (FUMARATE ACIDE DE) [Concomitant]
     Active Substance: BISOPROLOL FUMARATE
     Route: 065
  9. DEROXAT 20 MG, COMPRIM? PELLICUL? S?CABLE [Suspect]
     Active Substance: PAROXETINE HYDROCHLORIDE
     Indication: DEPRESSION
     Dosage: TABLET COATED SCORED.
     Route: 048
     Dates: start: 201706, end: 201805
  10. FUMAFER [Concomitant]
     Active Substance: FERROUS FUMARATE
     Route: 065
  11. ASPIRINE [Concomitant]
     Active Substance: ASPIRIN
     Route: 065

REACTIONS (3)
  - Urinary retention [Recovered/Resolved]
  - Hyponatraemia [Recovering/Resolving]
  - Hypokalaemia [Recovered/Resolved]

NARRATIVE: CASE EVENT DATE: 20180503
